FAERS Safety Report 25126744 (Version 1)
Quarter: 2025Q1

REPORT INFORMATION
  Report Type: Spontaneous
  Country: BE (occurrence: BE)
  Receive Date: 20250327
  Receipt Date: 20250327
  Transmission Date: 20250408
  Serious: Yes (Hospitalization)
  Sender: MERCK SHARP & DOHME LLC
  Company Number: BE-009507513-2266893

PATIENT
  Age: 44 Year
  Sex: Female

DRUGS (1)
  1. KEYTRUDA [Suspect]
     Active Substance: PEMBROLIZUMAB
     Indication: Non-small cell lung cancer stage III

REACTIONS (3)
  - Colitis [Unknown]
  - Autoimmune hepatitis [Unknown]
  - Renal failure [Unknown]

NARRATIVE: CASE EVENT DATE: 20241001
